FAERS Safety Report 25865836 (Version 4)
Quarter: 2025Q4

REPORT INFORMATION
  Report Type: Report from Study
  Country: US (occurrence: US)
  Receive Date: 20250930
  Receipt Date: 20251205
  Transmission Date: 20260117
  Serious: Yes (Hospitalization, Other)
  Sender: MALLINCKRODT
  Company Number: US-MALLINCKRODT-MNK202505900

PATIENT
  Sex: Male

DRUGS (3)
  1. CORTICOTROPIN [Suspect]
     Active Substance: CORTICOTROPIN
     Indication: Rheumatoid arthritis
     Dosage: 80 UNITS
  2. CORTICOTROPIN [Suspect]
     Active Substance: CORTICOTROPIN
     Dosage: 80 UNITS
  3. RITUXAN [Concomitant]
     Active Substance: RITUXIMAB
     Dosage: UNKNOWN

REACTIONS (6)
  - Rheumatoid arthritis [Unknown]
  - Infection [Recovering/Resolving]
  - Orchitis [Unknown]
  - Urinary tract infection [Unknown]
  - Tremor [Unknown]
  - Injection site bruising [Unknown]
